FAERS Safety Report 11282956 (Version 3)
Quarter: 2015Q3

REPORT INFORMATION
  Report Type: Spontaneous
  Country: HU (occurrence: HU)
  Receive Date: 20150720
  Receipt Date: 20150929
  Transmission Date: 20151125
  Serious: Yes (Other)
  Sender: FDA-Public Use
  Company Number: HU-PFIZER INC-2015233499

PATIENT
  Age: 71 Year
  Sex: Female

DRUGS (4)
  1. SALAZOPYRIN [Suspect]
     Active Substance: SULFASALAZINE
     Dosage: DAILY 2X1 TABLET
  2. SALAZOPYRIN [Suspect]
     Active Substance: SULFASALAZINE
     Dosage: DAILY 3X1 TABLET
  3. SALAZOPYRIN [Suspect]
     Active Substance: SULFASALAZINE
     Indication: COLITIS ULCERATIVE
     Dosage: DAILY 3X2 TABLETS
     Dates: start: 2009
  4. SALAZOPYRIN [Suspect]
     Active Substance: SULFASALAZINE
     Dosage: UNK

REACTIONS (10)
  - Dyskinesia [Not Recovered/Not Resolved]
  - Arthralgia [Not Recovered/Not Resolved]
  - Mental disorder [Not Recovered/Not Resolved]
  - Weight decreased [Not Recovered/Not Resolved]
  - Skin ulcer [Not Recovered/Not Resolved]
  - Muscular dystrophy [Not Recovered/Not Resolved]
  - Calcium deficiency [Not Recovered/Not Resolved]
  - Wound [Not Recovered/Not Resolved]
  - Peripheral swelling [Recovering/Resolving]
  - Dermatitis exfoliative [Not Recovered/Not Resolved]

NARRATIVE: CASE EVENT DATE: 2014
